FAERS Safety Report 10441125 (Version 2)
Quarter: 2014Q3

REPORT INFORMATION
  Report Type: Spontaneous
  Country: FR (occurrence: FR)
  Receive Date: 20140909
  Receipt Date: 20140909
  Transmission Date: 20150326
  Serious: Yes (Death)
  Sender: FDA-Public Use
  Company Number: FR-ROCHE-1370836

PATIENT
  Sex: Male
  Weight: 83 kg

DRUGS (13)
  1. HYPERIUM [Concomitant]
     Active Substance: RILMENIDINE PHOSPHATE
  2. EFFEXOR [Concomitant]
     Active Substance: VENLAFAXINE HYDROCHLORIDE
  3. TAHOR [Concomitant]
     Active Substance: ATORVASTATIN CALCIUM
  4. XARELTO [Concomitant]
     Active Substance: RIVAROXABAN
  5. NEFOPAM [Concomitant]
     Active Substance: NEFOPAM
  6. MORPHINE [Concomitant]
     Active Substance: MORPHINE
  7. AMLODIPINE [Concomitant]
     Active Substance: AMLODIPINE BESYLATE
  8. MIRTAZAPINE. [Concomitant]
     Active Substance: MIRTAZAPINE
  9. DIAMICRON [Concomitant]
     Active Substance: GLICLAZIDE
  10. INEXIUM [Concomitant]
     Active Substance: ESOMEPRAZOLE
  11. ZELBORAF [Suspect]
     Active Substance: VEMURAFENIB
     Indication: METASTATIC MALIGNANT MELANOMA
     Route: 048
     Dates: start: 20140305, end: 20140321
  12. GLUCOSE 5% [Concomitant]
     Active Substance: DEXTROSE
  13. STAGID [Concomitant]
     Active Substance: METFORMIN PAMOATE

REACTIONS (3)
  - No adverse event [Unknown]
  - Wrong technique in drug usage process [Unknown]
  - Metastatic malignant melanoma [Fatal]

NARRATIVE: CASE EVENT DATE: 20140320
